FAERS Safety Report 20160553 (Version 2)
Quarter: 2022Q1

REPORT INFORMATION
  Report Type: Spontaneous
  Country: US (occurrence: US)
  Receive Date: 20211208
  Receipt Date: 20220309
  Transmission Date: 20220423
  Serious: No
  Sender: FDA-Public Use
  Company Number: US-PFIZER INC-202101194772

PATIENT
  Age: 55 Year
  Sex: Male

DRUGS (1)
  1. XELJANZ [Suspect]
     Active Substance: TOFACITINIB CITRATE
     Indication: Rheumatoid arthritis
     Dosage: 5 MG, 2X/DAY
     Route: 048
     Dates: start: 20210804

REACTIONS (5)
  - Drug ineffective [Unknown]
  - Joint injury [Unknown]
  - Inflammation [Recovering/Resolving]
  - Depressed mood [Not Recovered/Not Resolved]
  - Product dose omission in error [Unknown]
